FAERS Safety Report 8948425 (Version 1)
Quarter: 2012Q4

REPORT INFORMATION
  Report Type: Spontaneous
  Country: GB (occurrence: None)
  Receive Date: 20121123
  Receipt Date: 20121123
  Transmission Date: 20130627
  Serious: Yes (Other)
  Sender: FDA-Public Use
  Company Number: AUR-APL-2012-04882

PATIENT
  Age: 26 Year
  Sex: Female

DRUGS (1)
  1. QUETIAPINE [Suspect]
     Route: 048

REACTIONS (6)
  - Hypersomnia [None]
  - Treatment noncompliance [None]
  - Drug withdrawal syndrome [None]
  - Psychotic disorder [None]
  - Aggression [None]
  - Hallucination [None]
